FAERS Safety Report 9507160 (Version 1)
Quarter: 2013Q1

REPORT INFORMATION
  Report Type: Spontaneous
  Country: US (occurrence: None)
  Receive Date: 20130305
  Receipt Date: 20130305
  Transmission Date: 20140127
  Serious: Yes (Other)
  Sender: FDA-Public Use
  Company Number: 163-21880-12113760

PATIENT
  Age: 69 Year
  Sex: Female
  Weight: 80.51 kg

DRUGS (6)
  1. REVLIMID [Suspect]
     Indication: PLASMA CELL MYELOMA
     Dosage: 5 MG, 21 IN 21 D, PO
     Route: 048
     Dates: start: 20110901
  2. ASPIRIN (ACETYLSALICYLIC ACID) [Concomitant]
  3. CEFDINIR (CEFDINIR) [Concomitant]
  4. FOSAMAX (ALENDRONATE SODIUM) [Concomitant]
  5. CALCIUM + D (OS-CAL) [Concomitant]
  6. NEUPOGEN (FILGRASTIM) [Concomitant]

REACTIONS (1)
  - Drug dose omission [None]
